FAERS Safety Report 14852323 (Version 1)
Quarter: 2018Q2

REPORT INFORMATION
  Report Type: Spontaneous
  Country: US (occurrence: US)
  Receive Date: 20180507
  Receipt Date: 20180507
  Transmission Date: 20180711
  Serious: No
  Sender: FDA-Public Use
  Company Number: US-PFIZER INC-2018183028

PATIENT
  Sex: Male

DRUGS (1)
  1. LYRICA [Suspect]
     Active Substance: PREGABALIN
     Dosage: UNK

REACTIONS (11)
  - Headache [Unknown]
  - Weight decreased [Unknown]
  - Anxiety [Unknown]
  - Panic attack [Unknown]
  - Decreased appetite [Unknown]
  - Hyperhidrosis [Unknown]
  - Micturition disorder [Unknown]
  - Dry mouth [Unknown]
  - Feeling abnormal [Unknown]
  - Insomnia [Unknown]
  - Dizziness [Unknown]
